FAERS Safety Report 15542965 (Version 1)
Quarter: 2018Q4

REPORT INFORMATION
  Report Type: Spontaneous
  Country: US (occurrence: US)
  Receive Date: 20181023
  Receipt Date: 20181023
  Transmission Date: 20190205
  Serious: Yes (Other)
  Sender: FDA-Public Use
  Company Number: US-BAYER-2018-193942

PATIENT
  Age: 61 Year
  Sex: Female

DRUGS (1)
  1. BETASERON [Suspect]
     Active Substance: INTERFERON BETA-1B
     Indication: MULTIPLE SCLEROSIS
     Dosage: 0.25 MG, Q72HR
     Dates: start: 1994

REACTIONS (4)
  - Inappropriate schedule of product administration [None]
  - Fatigue [None]
  - Multiple sclerosis relapse [None]
  - Herpes zoster [None]

NARRATIVE: CASE EVENT DATE: 2017
